FAERS Safety Report 6626698-5 (Version None)
Quarter: 2010Q1

REPORT INFORMATION
  Report Type: 
  Country: None (occurrence: None)
  Receive Date: 20100308
  Receipt Date: 20100223
  Transmission Date: 20100710
  Serious: Yes (Hospitalization)
  Sender: FDA-Public Use
  Company Number: TCI2010A00626

PATIENT
  Age: 69 Year
  Sex: Female

DRUGS (13)
  1. ACTOS [Suspect]
     Indication: DIABETES MELLITUS
     Dosage: 7.5 MG (7.5 MG,1 IN 1 D) PER ORAL
     Route: 048
     Dates: start: 20090323, end: 20090723
  2. VITANEURIN (PO) (FURSULTIAMINE, PYRIDOXAL 5-PHOSPHATE,HYDROXCOBA) [Concomitant]
  3. DEPAS (ETIZOLAM) [Concomitant]
  4. STAYBLA (IMIDAFENACIN) (UROLOGICALS) [Concomitant]
  5. AMARYL [Concomitant]
  6. DIOVAN [Concomitant]
  7. AMLODIN (AMODIPINE BESILATE) [Concomitant]
  8. TATSUPLAMIN (PRAVASTATIN SODIUM) [Concomitant]
  9. LIVALO (ITAVASTATIN CALCIUM) [Concomitant]
  10. FLUTIRAN (TRICHLORMETHIAZIDE) [Concomitant]
  11. NORVASC [Concomitant]
  12. PREMINENT (HYDROCHLOROTHIAZIDE, LOSARTAN POTASSIUM) [Concomitant]
  13. CRESTOR (ROSUAVSTATIN CALCIUM) [Concomitant]

REACTIONS (2)
  - CEREBRAL INFARCTION [None]
  - EYELID OEDEMA [None]
